FAERS Safety Report 15323648 (Version 2)
Quarter: 2018Q3

REPORT INFORMATION
  Report Type: Report from Study
  Country: None (occurrence: US)
  Receive Date: 20180827
  Receipt Date: 20180924
  Transmission Date: 20181010
  Serious: Yes (Hospitalization, Other)
  Sender: FDA-Public Use
  Company Number: US-ABBVIE-17K-163-2200736-00

PATIENT
  Age: 48 Year
  Sex: Female

DRUGS (3)
  1. HUMIRA [Suspect]
     Active Substance: ADALIMUMAB
     Indication: CROHN^S DISEASE
     Dosage: DAY 1
     Route: 058
     Dates: start: 20171217, end: 20171217
  2. HUMIRA [Suspect]
     Active Substance: ADALIMUMAB
     Dosage: DAY 15
     Route: 058
     Dates: start: 20171231, end: 20171231
  3. HUMIRA [Suspect]
     Active Substance: ADALIMUMAB
     Dosage: DAY 29 MAINTENANCE DOSE.
     Route: 058
     Dates: start: 20180114

REACTIONS (21)
  - Pyrexia [Not Recovered/Not Resolved]
  - Injection site pruritus [Recovered/Resolved]
  - Constipation [Not Recovered/Not Resolved]
  - Skin irritation [Recovered/Resolved]
  - Injection site erythema [Recovered/Resolved]
  - Crohn^s disease [Unknown]
  - Night sweats [Unknown]
  - Blood sodium decreased [Recovered/Resolved]
  - Diarrhoea [Not Recovered/Not Resolved]
  - Pruritus [Recovered/Resolved]
  - Nausea [Recovering/Resolving]
  - Headache [Recovering/Resolving]
  - Injection site irritation [Recovered/Resolved]
  - Decreased appetite [Recovering/Resolving]
  - Vomiting [Recovered/Resolved]
  - Gastrointestinal stenosis [Unknown]
  - Malaise [Not Recovered/Not Resolved]
  - Abdominal pain [Recovering/Resolving]
  - Drug ineffective [Unknown]
  - Vomiting [Unknown]
  - Nasopharyngitis [Not Recovered/Not Resolved]

NARRATIVE: CASE EVENT DATE: 201712
